FAERS Safety Report 4417372-4 (Version None)
Quarter: 2004Q3

REPORT INFORMATION
  Report Type: 
  Country: None (occurrence: None)
  Receive Date: 20040702
  Receipt Date: 20040116
  Transmission Date: 20050211
  Serious: Yes (Other)
  Sender: FDA-Public Use
  Company Number: 2004004015

PATIENT
  Age: 69 Year
  Sex: Male
  Weight: 110 kg

DRUGS (5)
  1. ACCUPRIL [Suspect]
     Indication: HYPERTENSION
     Dosage: 20 MG (DAILY), ORAL
     Route: 048
     Dates: start: 20031201
  2. ATENOLOL [Concomitant]
  3. CHLORTALIDONE (CHLORTALIDONE) [Concomitant]
  4. SPIRONOLACTONE [Concomitant]
  5. AMLODIPINE BESYLATE [Concomitant]

REACTIONS (3)
  - ANGIONEUROTIC OEDEMA [None]
  - HYPERSENSITIVITY [None]
  - SWELLING FACE [None]
